FAERS Safety Report 9771221 (Version 1)
Quarter: 2013Q4

REPORT INFORMATION
  Report Type: Spontaneous
  Country: CH (occurrence: CH)
  Receive Date: 20131218
  Receipt Date: 20131218
  Transmission Date: 20140711
  Serious: Yes (Hospitalization, Other)
  Sender: FDA-Public Use
  Company Number: CH-ASTRAZENECA-2006AC01544

PATIENT
  Age: 47 Year
  Sex: Male

DRUGS (42)
  1. SEROQUEL [Suspect]
     Indication: DEPRESSION
     Dosage: 600-700 MG PER DAY
     Route: 048
  2. SEROQUEL [Suspect]
     Indication: DELUSION
     Dosage: 600-700 MG PER DAY
     Route: 048
  3. SEROQUEL [Suspect]
     Indication: DEPRESSION
     Dosage: TAPERED DOWN FROM 700 MG/DAY TO 300 MG/DAY
     Route: 048
  4. SEROQUEL [Suspect]
     Indication: DELUSION
     Dosage: TAPERED DOWN FROM 700 MG/DAY TO 300 MG/DAY
     Route: 048
  5. SEROQUEL [Suspect]
     Indication: DEPRESSION
     Route: 048
     Dates: start: 20040209, end: 20040211
  6. SEROQUEL [Suspect]
     Indication: DELUSION
     Route: 048
     Dates: start: 20040209, end: 20040211
  7. SEROQUEL [Suspect]
     Indication: DEPRESSION
     Route: 048
     Dates: start: 20040212, end: 20040213
  8. SEROQUEL [Suspect]
     Indication: DELUSION
     Route: 048
     Dates: start: 20040212, end: 20040213
  9. SEROQUEL [Suspect]
     Indication: DEPRESSION
     Route: 048
     Dates: start: 20040214, end: 20040215
  10. SEROQUEL [Suspect]
     Indication: DELUSION
     Route: 048
     Dates: start: 20040214, end: 20040215
  11. SEROQUEL [Suspect]
     Indication: DEPRESSION
     Route: 048
     Dates: start: 20040216, end: 20040216
  12. SEROQUEL [Suspect]
     Indication: DELUSION
     Route: 048
     Dates: start: 20040216, end: 20040216
  13. SEROQUEL [Suspect]
     Indication: DEPRESSION
     Route: 048
     Dates: start: 20040217, end: 20040219
  14. SEROQUEL [Suspect]
     Indication: DELUSION
     Route: 048
     Dates: start: 20040217, end: 20040219
  15. SEROQUEL [Suspect]
     Indication: DEPRESSION
     Route: 048
     Dates: start: 20040220, end: 20040224
  16. SEROQUEL [Suspect]
     Indication: DELUSION
     Route: 048
     Dates: start: 20040220, end: 20040224
  17. SEROQUEL [Suspect]
     Indication: DEPRESSION
     Route: 048
     Dates: start: 20040225, end: 20040226
  18. SEROQUEL [Suspect]
     Indication: DELUSION
     Route: 048
     Dates: start: 20040225, end: 20040226
  19. SEROQUEL [Suspect]
     Indication: DEPRESSION
     Route: 048
     Dates: start: 20040207, end: 20040304
  20. SEROQUEL [Suspect]
     Indication: DELUSION
     Route: 048
     Dates: start: 20040207, end: 20040304
  21. SEROQUEL [Suspect]
     Indication: DEPRESSION
     Route: 048
     Dates: start: 20040305, end: 20040330
  22. SEROQUEL [Suspect]
     Indication: DELUSION
     Route: 048
     Dates: start: 20040305, end: 20040330
  23. SEROQUEL [Suspect]
     Indication: DEPRESSION
     Route: 048
     Dates: start: 20040331, end: 20040402
  24. SEROQUEL [Suspect]
     Indication: DELUSION
     Route: 048
     Dates: start: 20040331, end: 20040402
  25. SEROQUEL [Suspect]
     Indication: DEPRESSION
     Route: 048
     Dates: start: 20040403, end: 20040419
  26. SEROQUEL [Suspect]
     Indication: DELUSION
     Route: 048
     Dates: start: 20040403, end: 20040419
  27. SEROQUEL [Suspect]
     Indication: DEPRESSION
     Route: 048
     Dates: start: 20040420, end: 20040422
  28. SEROQUEL [Suspect]
     Indication: DELUSION
     Route: 048
     Dates: start: 20040420, end: 20040422
  29. ANAFRANIL [Suspect]
     Indication: DEPRESSION
     Route: 048
     Dates: start: 20040316, end: 20040316
  30. ANAFRANIL [Suspect]
     Indication: DEPRESSION
     Route: 048
     Dates: start: 20040317, end: 20040317
  31. ANAFRANIL [Suspect]
     Indication: DEPRESSION
     Route: 048
     Dates: start: 20040318, end: 20040319
  32. ANAFRANIL [Suspect]
     Indication: DEPRESSION
     Route: 048
     Dates: start: 20040320, end: 20040322
  33. ANAFRANIL [Suspect]
     Indication: DEPRESSION
     Route: 048
     Dates: start: 20040323, end: 20040412
  34. ANAFRANIL [Suspect]
     Indication: DEPRESSION
     Route: 048
     Dates: start: 20040413, end: 20040427
  35. ANAFRANIL [Suspect]
     Indication: DEPRESSION
     Route: 048
     Dates: start: 20040428
  36. MIRTAZAPINE [Concomitant]
     Indication: DEPRESSION
     Dosage: MAXIMUM DOSE 60 MG/DAY.
     Dates: end: 20040305
  37. EFEXOR ER [Concomitant]
     Indication: DEPRESSION
     Dosage: MAXIMUM DOSE 300 MG/DAY.
     Route: 048
  38. EFEXOR ER [Concomitant]
     Indication: DEPRESSION
     Route: 048
     Dates: start: 20040301, end: 20040304
  39. EFEXOR ER [Concomitant]
     Indication: DEPRESSION
     Route: 048
     Dates: start: 20040305, end: 20040311
  40. EFEXOR ER [Concomitant]
     Indication: DEPRESSION
     Route: 048
     Dates: start: 20040312, end: 20040315
  41. LORAZEPAM [Concomitant]
  42. CLOTIAPIN [Concomitant]
     Dates: end: 20040216

REACTIONS (8)
  - Hyperhidrosis [Recovered/Resolved]
  - Blood alkaline phosphatase increased [Recovered/Resolved]
  - Antipsychotic drug level above therapeutic [Recovered/Resolved]
  - Tachycardia [Recovered/Resolved]
  - Hypotension [Recovered/Resolved]
  - Dizziness [Recovered/Resolved]
  - Constipation [Recovered/Resolved]
  - Gamma-glutamyltransferase increased [Recovering/Resolving]
